FAERS Safety Report 24427594 (Version 1)
Quarter: 2024Q4

REPORT INFORMATION
  Report Type: Other
  Country: US (occurrence: US)
  Receive Date: 20241011
  Receipt Date: 20241011
  Transmission Date: 20250114
  Serious: Yes (Other)
  Sender: YOUNGTECH PHARMACEUTICALS, INC
  Company Number: US-YoungTech Pharmaceuticals, Inc.-2162849

PATIENT
  Age: 64 Year
  Sex: Male
  Weight: 104.55 kg

DRUGS (7)
  1. METOPROLOL TARTRATE [Suspect]
     Active Substance: METOPROLOL TARTRATE
     Indication: Cardiac failure
  2. SACUBITRIL\VALSARTAN [Suspect]
     Active Substance: SACUBITRIL\VALSARTAN
  3. EMPAGLIFLOZIN [Concomitant]
     Active Substance: EMPAGLIFLOZIN
  4. SPIRONOLACTONE [Concomitant]
     Active Substance: SPIRONOLACTONE
  5. SEMAGLUTIDE [Concomitant]
     Active Substance: SEMAGLUTIDE
  6. TORSEMIDE [Suspect]
     Active Substance: TORSEMIDE
  7. TIRZEPATIDE [Suspect]
     Active Substance: TIRZEPATIDE

REACTIONS (5)
  - Acute kidney injury [Unknown]
  - Product use in unapproved indication [Unknown]
  - Drug interaction [Unknown]
  - Hypovolaemia [Recovered/Resolved]
  - Blood pressure systolic decreased [Recovered/Resolved]
